FAERS Safety Report 10756284 (Version 1)
Quarter: 2015Q1

REPORT INFORMATION
  Report Type: Report from Study
  Country: US (occurrence: US)
  Receive Date: 20150202
  Receipt Date: 20150202
  Transmission Date: 20150721
  Serious: Yes (Hospitalization, Other)
  Sender: FDA-Public Use
  Company Number: US-ACTELION-A-NJ2014-106997

PATIENT
  Age: 75 Year
  Sex: Female

DRUGS (3)
  1. TRACLEER [Suspect]
     Active Substance: BOSENTAN\BOSENTAN MONOHYDRATE
     Indication: PULMONARY ARTERIAL HYPERTENSION
     Dosage: UNK
     Route: 048
  2. ASPIRIN. [Concomitant]
     Active Substance: ASPIRIN
  3. OXYGEN. [Concomitant]
     Active Substance: OXYGEN

REACTIONS (8)
  - Syncope [Unknown]
  - Nephrolithiasis [Unknown]
  - Dizziness [Unknown]
  - Fall [Unknown]
  - Sepsis [Unknown]
  - Muscular weakness [Unknown]
  - Alopecia [Unknown]
  - Drug dose omission [Unknown]
